FAERS Safety Report 18076196 (Version 1)
Quarter: 2020Q3

REPORT INFORMATION
  Report Type: Spontaneous
  Country: US (occurrence: US)
  Receive Date: 20200727
  Receipt Date: 20200727
  Transmission Date: 20201103
  Serious: No
  Sender: FDA-Public Use
  Company Number: US-ABBVIE-20K-163-3401802-00

PATIENT
  Sex: Female

DRUGS (1)
  1. SYNTHROID [Suspect]
     Active Substance: LEVOTHYROXINE SODIUM
     Indication: PRODUCT USED FOR UNKNOWN INDICATION
     Route: 048

REACTIONS (10)
  - Renal function test abnormal [Unknown]
  - Chest pain [Unknown]
  - Autoimmune thyroiditis [Unknown]
  - Hyperhidrosis [Not Recovered/Not Resolved]
  - Liver function test abnormal [Unknown]
  - Condition aggravated [Unknown]
  - Cardiac function test abnormal [Unknown]
  - Nausea [Unknown]
  - Blood pressure increased [Unknown]
  - Weight increased [Unknown]
